FAERS Safety Report 7756678-8 (Version None)
Quarter: 2011Q3

REPORT INFORMATION
  Report Type: 
  Country: None (occurrence: None)
  Receive Date: 20110916
  Receipt Date: 20110901
  Transmission Date: 20111222
  Serious: Yes (Hospitalization)
  Sender: FDA-Public Use
  Company Number: CN-JNJFOC-2006105183

PATIENT
  Age: 63 Year
  Sex: Female

DRUGS (5)
  1. KETOCONAZOLE [Suspect]
     Indication: FUNGAL SKIN INFECTION
     Dosage: FREQUENCY TEXT: UNKNOWN DAILY DOSE QTY: 400 MG
     Route: 065
  2. ANTIHYPERTENSIVES [Concomitant]
     Route: 065
  3. CETIRIZINE HCL [Suspect]
  4. CETIRIZINE HCL [Suspect]
     Indication: FUNGAL SKIN INFECTION
  5. ORAL ANTIDIABETICS [Concomitant]
     Route: 065

REACTIONS (1)
  - TORSADE DE POINTES [None]
